FAERS Safety Report 17439422 (Version 1)
Quarter: 2020Q1

REPORT INFORMATION
  Report Type: Report from Study
  Country: US (occurrence: US)
  Receive Date: 20200220
  Receipt Date: 20200220
  Transmission Date: 20200409
  Serious: Yes (Other)
  Sender: FDA-Public Use
  Company Number: US-ROCHE-2533045

PATIENT
  Sex: Female

DRUGS (1)
  1. RITUXAN [Suspect]
     Active Substance: RITUXIMAB
     Indication: RHEUMATOID ARTHRITIS
     Dosage: ON WEEK(S) 0 AND WEEK 2
     Route: 041

REACTIONS (3)
  - Cholelithiasis [Unknown]
  - Dry mouth [Unknown]
  - Back pain [Unknown]
